FAERS Safety Report 9530723 (Version 1)
Quarter: 2013Q2

REPORT INFORMATION
  Report Type: Spontaneous
  Country: US (occurrence: None)
  Receive Date: 20130418
  Receipt Date: 20130418
  Transmission Date: 20140414
  Serious: Yes (Other)
  Sender: FDA-Public Use
  Company Number: 1301USA001562

PATIENT
  Age: 74 Year
  Sex: Female

DRUGS (4)
  1. MONTELUKAST SODIUM [Suspect]
     Indication: DIABETES MELLITUS
  2. STARSIS [Suspect]
     Route: 048
  3. CIBENOL (CIFENLINE SUCCINATE) [Concomitant]
  4. NU-LOTAN (LOSARTAN POTASSIUM) [Concomitant]

REACTIONS (2)
  - Alanine aminotransferase increased [None]
  - Hepatic function abnormal [None]
